FAERS Safety Report 6505326-3 (Version None)
Quarter: 2009Q4

REPORT INFORMATION
  Report Type: 
  Country: None (occurrence: None)
  Receive Date: 20091218
  Receipt Date: 20091210
  Transmission Date: 20100525
  Serious: Yes (Hospitalization)
  Sender: FDA-Public Use
  Company Number: US-JNJFOC-20091203906

PATIENT
  Sex: Female
  Weight: 58.97 kg

DRUGS (4)
  1. SANDOZ FENTANYL TRANSDERMAL SYSTEM [Suspect]
     Indication: BACK PAIN
     Route: 062
     Dates: start: 20050101
  2. TOPAMAX [Concomitant]
     Indication: MUSCLE RELAXANT THERAPY
     Route: 048
     Dates: start: 20050101
  3. LYRICA [Concomitant]
     Indication: BACK PAIN
     Route: 048
     Dates: start: 20050101
  4. DILAUDID [Concomitant]
     Indication: BACK PAIN
     Route: 048
     Dates: start: 20050101

REACTIONS (6)
  - BACK PAIN [None]
  - DRUG ADMINISTERED AT INAPPROPRIATE SITE [None]
  - NEPHROLITHIASIS [None]
  - PAIN [None]
  - SPINAL COMPRESSION FRACTURE [None]
  - WRONG TECHNIQUE IN DRUG USAGE PROCESS [None]
